FAERS Safety Report 10301725 (Version 1)
Quarter: 2014Q3

REPORT INFORMATION
  Report Type: Spontaneous
  Country: US (occurrence: None)
  Receive Date: 20140710
  Receipt Date: 20140710
  Transmission Date: 20150326
  Serious: No
  Sender: FDA-Public Use
  Company Number: None

PATIENT
  Age: 27 Year
  Sex: Female
  Weight: 60.78 kg

DRUGS (2)
  1. CRINONE [Suspect]
     Active Substance: PROGESTERONE
     Indication: PROGESTERONE DECREASED
     Dosage: ONE VAGINAL APPLICATOR INSERTED Q HS
     Route: 067
     Dates: start: 20131129, end: 20140110
  2. CRINONE [Suspect]
     Active Substance: PROGESTERONE
     Indication: PREGNANCY
     Dosage: ONE VAGINAL APPLICATOR INSERTED Q HS
     Route: 067
     Dates: start: 20131129, end: 20140110

REACTIONS (6)
  - Erythema [None]
  - Discomfort [None]
  - Medication residue present [None]
  - Urinary retention [None]
  - Vaginal discharge [None]
  - Vulvovaginal discomfort [None]

NARRATIVE: CASE EVENT DATE: 20140613
